FAERS Safety Report 23972605 (Version 1)
Quarter: 2024Q2

REPORT INFORMATION
  Report Type: Spontaneous
  Country: US (occurrence: None)
  Receive Date: 20240613
  Receipt Date: 20240613
  Transmission Date: 20240716
  Serious: Yes (Other)
  Sender: FDA-Public Use
  Company Number: None

PATIENT
  Age: 44 Year
  Sex: Female
  Weight: 78.75 kg

DRUGS (1)
  1. CEPHALEXIN [Suspect]
     Active Substance: CEPHALEXIN
     Indication: Infection prophylaxis
     Dosage: OTHER QUANTITY : 40 CAPSULE(S);?FREQUENCY : 4 TIMES A DAY;?
     Route: 048
     Dates: start: 20240610, end: 20240612

REACTIONS (5)
  - Headache [None]
  - Abdominal discomfort [None]
  - Diarrhoea [None]
  - Mucous stools [None]
  - Dizziness [None]

NARRATIVE: CASE EVENT DATE: 20240612
